FAERS Safety Report 10540573 (Version 1)
Quarter: 2014Q4

REPORT INFORMATION
  Report Type: Spontaneous
  Country: ES (occurrence: None)
  Receive Date: 20141022
  Receipt Date: 20141022
  Transmission Date: 20150529
  Serious: Yes (Hospitalization)
  Sender: FDA-Public Use
  Company Number: VAL_03482_2014

PATIENT
  Age: 81 Year
  Sex: Female

DRUGS (4)
  1. ROYEN [Suspect]
     Active Substance: CALCIUM ACETATE
     Indication: HYPOPARATHYROIDISM
     Route: 048
     Dates: end: 20140423
  2. OPTOVITE B12 [Concomitant]
  3. CAOSINA [Suspect]
     Active Substance: CALCIUM CARBONATE
     Indication: HYPOPARATHYROIDISM
     Dosage: 24 SOBRES
     Route: 048
     Dates: end: 20140423
  4. ROCALTROL [Suspect]
     Active Substance: CALCITRIOL
     Indication: HYPOPARATHYROIDISM
     Dosage: DOSE REDUCED
     Route: 048

REACTIONS (2)
  - Paraesthesia [None]
  - Hypercalcaemia [None]

NARRATIVE: CASE EVENT DATE: 20140312
